FAERS Safety Report 9705370 (Version 2)
Quarter: 2014Q1

REPORT INFORMATION
  Report Type: Report from Study
  Country: BR (occurrence: BR)
  Receive Date: 20131122
  Receipt Date: 20140128
  Transmission Date: 20141002
  Serious: Yes (Hospitalization)
  Sender: FDA-Public Use
  Company Number: PHHY2013BR134316

PATIENT
  Age: 35 Year
  Sex: Female
  Weight: 69 kg

DRUGS (4)
  1. RITALIN [Suspect]
     Indication: ATTENTION DEFICIT/HYPERACTIVITY DISORDER
     Dosage: 3 DF, BID (IN THE MORNING AND AT LUNCH)
     Route: 048
  2. RITALIN [Suspect]
     Indication: OFF LABEL USE
  3. VENLAFAXINE [Concomitant]
     Indication: AFFECT LABILITY
     Dosage: UNK UKN, UNK
  4. RIVOTRIL [Concomitant]
     Indication: INSOMNIA
     Dosage: UNK UKN, UNK

REACTIONS (2)
  - Dysphagia [Recovering/Resolving]
  - Weight decreased [Recovering/Resolving]
